FAERS Safety Report 9356303 (Version 1)
Quarter: 2013Q2

REPORT INFORMATION
  Report Type: Spontaneous
  Country: GB (occurrence: None)
  Receive Date: 20130614
  Receipt Date: 20130614
  Transmission Date: 20140414
  Serious: Yes (Death, Other)
  Sender: FDA-Public Use
  Company Number: GER/UKI/13/0029971

PATIENT
  Age: 67 Year
  Sex: Female

DRUGS (6)
  1. SERTRALINE (SERTRALINE) (SERTRALINE) [Suspect]
     Indication: NOSOCOMIAL INFECTION
     Route: 048
     Dates: start: 20090901, end: 20090906
  2. OXYCODONE (OXYCODONE) [Suspect]
     Indication: NOSOCOMIAL INFECTION
     Route: 048
     Dates: start: 20090901, end: 20090906
  3. ERYTHROMYCIN (ERYTHROMYCIN) [Suspect]
     Indication: NOSOCOMIAL INFECTION
     Route: 048
     Dates: start: 20090901, end: 20090906
  4. DEXAMETHASONE (DEXAMETHASONE) [Suspect]
     Indication: NOSOCOMIAL INFECTION
     Route: 048
     Dates: start: 20090901, end: 20090906
  5. CLARITHROMYCIN (CLARITHROMYCIN) [Suspect]
     Indication: NOSOCOMIAL INFECTION
     Route: 048
     Dates: start: 20090901, end: 20090906
  6. AUGMENTIN [Suspect]
     Indication: NOSOCOMIAL INFECTION
     Route: 048
     Dates: start: 20090901, end: 20090906

REACTIONS (4)
  - Dyspnoea [None]
  - Respiratory disorder [None]
  - Drug prescribing error [None]
  - Contraindication to medical treatment [None]
